FAERS Safety Report 9123491 (Version 1)
Quarter: 2013Q1

REPORT INFORMATION
  Report Type: Spontaneous
  Country: US (occurrence: US)
  Receive Date: 20130115
  Receipt Date: 20130115
  Transmission Date: 20140127
  Serious: Yes (Hospitalization)
  Sender: FDA-Public Use
  Company Number: US-009507513-1301USA003422

PATIENT
  Sex: Female

DRUGS (2)
  1. SINGULAIR [Suspect]
  2. ADVAIR [Suspect]

REACTIONS (1)
  - Arrhythmia [Unknown]
